FAERS Safety Report 4385049-X (Version None)
Quarter: 2004Q2

REPORT INFORMATION
  Report Type: 
  Country: None (occurrence: None)
  Receive Date: 20040625
  Receipt Date: 20040615
  Transmission Date: 20050107
  Serious: Yes (Hospitalization)
  Sender: FDA-Public Use
  Company Number: FR-GLAXOSMITHKLINE-B0336379A

PATIENT
  Age: 18 Month
  Sex: Male
  Weight: 9 kg

DRUGS (1)
  1. DEROXAT [Suspect]
     Dosage: 40MG SINGLE DOSE
     Route: 048
     Dates: start: 20040615, end: 20040615

REACTIONS (4)
  - ACCIDENTAL OVERDOSE [None]
  - BLOOD UREA INCREASED [None]
  - DYSKINESIA [None]
  - TACHYCARDIA [None]
